FAERS Safety Report 8597432-7 (Version None)
Quarter: 2012Q3

REPORT INFORMATION
  Report Type: 
  Country: None (occurrence: None)
  Receive Date: 20120816
  Receipt Date: 20120807
  Transmission Date: 20120928
  Serious: Yes (Other)
  Sender: FDA-Public Use
  Company Number: US-JNJFOC-20120613541

PATIENT
  Age: 63 Year
  Sex: Male

DRUGS (8)
  1. ITRACONAZOLE [Suspect]
     Indication: HISTOPLASMOSIS
     Route: 048
     Dates: start: 20060601, end: 20070301
  2. AZATHIOPRINE SODIUM [Concomitant]
     Indication: HISTOPLASMOSIS
     Route: 065
  3. AMPHOTERICIN B [Suspect]
     Indication: HISTOPLASMOSIS
     Dosage: FOR 2 WEEKS
     Route: 065
     Dates: start: 20060601
  4. CORTICOSTEROIDS [Suspect]
     Indication: HISTOPLASMOSIS
     Route: 065
  5. MYCOPHENOLATE MOFETIL [Concomitant]
     Indication: HISTOPLASMOSIS
     Route: 065
  6. CYCLOSPORINE [Concomitant]
     Indication: HISTOPLASMOSIS
     Route: 065
  7. TACROLIMUS [Suspect]
     Indication: HISTOPLASMOSIS
     Route: 065
  8. SIROLIMUS [Concomitant]
     Indication: HISTOPLASMOSIS
     Route: 065

REACTIONS (2)
  - DRUG INTOLERANCE [None]
  - GASTROINTESTINAL DISORDER [None]
